FAERS Safety Report 6815349-2 (Version None)
Quarter: 2010Q3

REPORT INFORMATION
  Report Type: 
  Country: None (occurrence: None)
  Receive Date: 20100702
  Receipt Date: 20100621
  Transmission Date: 20110219
  Serious: Yes (Hospitalization, Other)
  Sender: FDA-Public Use
  Company Number: US-ELI_LILLY_AND_COMPANY-US200906005675

PATIENT
  Sex: Female
  Weight: 107.48 kg

DRUGS (24)
  1. BYETTA [Suspect]
     Dosage: UNK, UNK
     Dates: start: 20060101
  2. BYETTA [Suspect]
     Dates: start: 20070326, end: 20070715
  3. BYETTA [Suspect]
     Dosage: 5 U, 3/D
  4. BYETTA [Suspect]
     Dates: start: 20080107, end: 20080725
  5. BYETTA [Suspect]
     Dates: start: 20081020, end: 20090324
  6. BYETTA [Suspect]
     Dosage: 10 UG, UNK
  7. GLUCOPHAGE [Concomitant]
  8. GLUCOTROL [Concomitant]
  9. ZESTRIL [Concomitant]
  10. HYDROCHLOROTHIAZIDE [Concomitant]
  11. XANAX [Concomitant]
  12. SOMA [Concomitant]
  13. PERCOCET [Concomitant]
  14. ALBUTEROL [Concomitant]
  15. ATROVENT [Concomitant]
  16. ESTRADIOL [Concomitant]
  17. NITROGLYCERIN [Concomitant]
  18. ASPIRIN [Concomitant]
  19. AMBIEN [Concomitant]
  20. PHENERGAN [Concomitant]
  21. ZOCOR [Concomitant]
  22. LANTUS [Concomitant]
  23. NOVOLIN [Concomitant]
  24. NEXIUM [Concomitant]
     Dosage: 40 MG, EACH MORNING

REACTIONS (14)
  - ABDOMINAL PAIN [None]
  - ACUTE PRERENAL FAILURE [None]
  - BRONCHITIS [None]
  - DEHYDRATION [None]
  - DRUG ABUSE [None]
  - GASTROENTERITIS [None]
  - HYPERGLYCAEMIA [None]
  - LOSS OF CONSCIOUSNESS [None]
  - NAUSEA [None]
  - OFF LABEL USE [None]
  - PANCREATITIS ACUTE [None]
  - RENAL FAILURE [None]
  - SYNCOPE [None]
  - VOMITING [None]
